APPROVED DRUG PRODUCT: DEXTROAMPHETAMINE SULFATE
Active Ingredient: DEXTROAMPHETAMINE SULFATE
Strength: 10MG
Dosage Form/Route: TABLET;ORAL
Application: A204330 | Product #002 | TE Code: AA
Applicant: NOVEL LABORATORIES INC
Approved: Mar 16, 2016 | RLD: No | RS: No | Type: RX